FAERS Safety Report 6141365-2 (Version None)
Quarter: 2009Q2

REPORT INFORMATION
  Report Type: 
  Country: None (occurrence: None)
  Receive Date: 20090401
  Receipt Date: 20090401
  Transmission Date: 20091009
  Serious: Yes (Disabling, Other)
  Sender: FDA-Public Use
  Company Number: None

PATIENT
  Age: 59 Year
  Sex: Female
  Weight: 104.3273 kg

DRUGS (2)
  1. CADUET [Suspect]
     Indication: HYPERCHOLESTEROLAEMIA
     Dosage: 1 TAB ONCE DAILY PO
     Route: 048
     Dates: start: 20051101, end: 20090227
  2. CADUET [Suspect]
     Indication: HYPERTENSION
     Dosage: 1 TAB ONCE DAILY PO
     Route: 048
     Dates: start: 20051101, end: 20090227

REACTIONS (7)
  - BLOOD CREATINE PHOSPHOKINASE INCREASED [None]
  - CARDIAC ENZYMES INCREASED [None]
  - COLD SWEAT [None]
  - DIZZINESS [None]
  - DYSPEPSIA [None]
  - ENURESIS [None]
  - RENAL DISORDER [None]
